FAERS Safety Report 7424038-5 (Version None)
Quarter: 2011Q2

REPORT INFORMATION
  Report Type: 
  Country: None (occurrence: None)
  Receive Date: 20110419
  Receipt Date: 20110314
  Transmission Date: 20111010
  Serious: Yes (Other)
  Sender: FDA-Public Use
  Company Number: US-BAYER-201038773NA

PATIENT
  Age: 28 Year
  Sex: Female
  Weight: 77.098 kg

DRUGS (4)
  1. OCELLA [Suspect]
     Dates: start: 20060701, end: 20100101
  2. YAZ [Suspect]
     Dates: start: 20060701, end: 20100101
  3. YASMIN [Suspect]
     Dates: start: 20060701, end: 20100101
  4. PREVACID [Concomitant]

REACTIONS (2)
  - GALLBLADDER INJURY [None]
  - CHOLECYSTITIS [None]
